FAERS Safety Report 12545478 (Version 2)
Quarter: 2016Q3

REPORT INFORMATION
  Report Type: Spontaneous
  Country: TW (occurrence: TW)
  Receive Date: 20160711
  Receipt Date: 20160719
  Transmission Date: 20161109
  Serious: Yes (Death)
  Sender: FDA-Public Use
  Company Number: TW-KERYX BIOPHARMACEUTICALS, INC.-2016TW002115

PATIENT
  Age: 48 Year
  Sex: Male

DRUGS (2)
  1. NEPHOXIL [Suspect]
     Active Substance: FERRIC CITRATE ANHYDROUS
     Indication: HYPERPHOSPHATAEMIA
     Dosage: 1,500 MG PER DAY (3X500 MG)
     Route: 048
     Dates: start: 20160411, end: 20160515
  2. ANTIHYPERTENSIVES [Concomitant]
     Active Substance: UNSPECIFIED INGREDIENT
     Dosage: UNK

REACTIONS (1)
  - Postoperative wound infection [Fatal]

NARRATIVE: CASE EVENT DATE: 201606
